FAERS Safety Report 4381830-1 (Version None)
Quarter: 2004Q2

REPORT INFORMATION
  Report Type: 
  Country: None (occurrence: None)
  Receive Date: 20040615
  Receipt Date: 20040602
  Transmission Date: 20050107
  Serious: Yes (Hospitalization)
  Sender: FDA-Public Use
  Company Number: 2004PK00993

PATIENT
  Age: 41 Year
  Sex: Male

DRUGS (9)
  1. IRESSA [Suspect]
     Indication: NON-SMALL CELL LUNG CANCER
     Dosage: 250 MG DAILY
     Dates: start: 20040413, end: 20040529
  2. KCL TAB [Concomitant]
  3. PANTOZOL [Concomitant]
  4. DECORTIN [Concomitant]
  5. NEBILET [Concomitant]
  6. LASIX [Concomitant]
  7. ALLOPURINOL [Concomitant]
  8. OXIS [Concomitant]
  9. ENALAPRIL MALEATE [Concomitant]

REACTIONS (2)
  - DYSPNOEA [None]
  - LUNG NEOPLASM [None]
